FAERS Safety Report 8922996 (Version 2)
Quarter: 2013Q1

REPORT INFORMATION
  Report Type: Report from Study
  Country: US (occurrence: US)
  Receive Date: 20121123
  Receipt Date: 20130305
  Transmission Date: 20140127
  Serious: Yes (Hospitalization, Other)
  Sender: FDA-Public Use
  Company Number: US-US-EMD SERONO, INC.-7177040

PATIENT
  Age: 56 Year
  Sex: Female

DRUGS (1)
  1. REBIF [Suspect]
     Indication: PRODUCT USED FOR UNKNOWN INDICATION
     Route: 058
     Dates: start: 20111104

REACTIONS (5)
  - Hip fracture [Recovered/Resolved]
  - Urethral haemorrhage [Unknown]
  - Fall [Recovering/Resolving]
  - Infection [Unknown]
  - Musculoskeletal pain [Not Recovered/Not Resolved]
